FAERS Safety Report 5714864-2 (Version None)
Quarter: 2008Q2

REPORT INFORMATION
  Report Type: 
  Country: None (occurrence: None)
  Receive Date: 20080423
  Receipt Date: 20080403
  Transmission Date: 20081010
  Serious: Yes (Other)
  Sender: FDA-Public Use
  Company Number: PHHY2008JP05015

PATIENT

DRUGS (2)
  1. FEMARA [Suspect]
     Indication: BREAST CANCER
     Dosage: 2.5 MG, QD
     Route: 048
     Dates: start: 20080327, end: 20080328
  2. URSO 250 [Concomitant]
     Indication: CHOLELITHIASIS
     Dosage: 3 DF
     Route: 048

REACTIONS (1)
  - BLOOD GLUCOSE INCREASED [None]
